FAERS Safety Report 7453477-1 (Version None)
Quarter: 2011Q2

REPORT INFORMATION
  Report Type: 
  Country: None (occurrence: None)
  Receive Date: 20110502
  Receipt Date: 20110201
  Transmission Date: 20111010
  Serious: Yes (Hospitalization)
  Sender: FDA-Public Use
  Company Number: US-ASTRAZENECA-2011SE05486

PATIENT
  Age: 86 Year
  Sex: Female

DRUGS (1)
  1. NEXIUM [Suspect]
     Indication: GASTROOESOPHAGEAL REFLUX DISEASE
     Route: 048
     Dates: start: 20020101, end: 20090101

REACTIONS (3)
  - DRUG DOSE OMISSION [None]
  - GASTROINTESTINAL HAEMORRHAGE [None]
  - ANAEMIA [None]
